FAERS Safety Report 15122877 (Version 1)
Quarter: 2018Q3

REPORT INFORMATION
  Report Type: Spontaneous
  Country: US (occurrence: US)
  Receive Date: 20180613
  Receipt Date: 20180613
  Transmission Date: 20181010
  Serious: Yes (Life-Threatening, Hospitalization)
  Sender: FDA-Public Use
  Company Number: None

PATIENT
  Age: 39 Year
  Sex: Female

DRUGS (1)
  1. GLATIRAMER 40MG PFS INJ (12 BOX) [Suspect]
     Active Substance: GLATIRAMER ACETATE
     Dates: start: 20170701, end: 20180415

REACTIONS (2)
  - Cardiac disorder [None]
  - Chest pain [None]

NARRATIVE: CASE EVENT DATE: 20180509
